FAERS Safety Report 22178514 (Version 1)
Quarter: 2023Q2

REPORT INFORMATION
  Report Type: Report from Study
  Country: US (occurrence: US)
  Receive Date: 20230405
  Receipt Date: 20230405
  Transmission Date: 20230722
  Serious: Yes (Hospitalization, Other)
  Sender: FDA-Public Use
  Company Number: US-ABBVIE-4716522

PATIENT
  Sex: Male

DRUGS (1)
  1. HUMIRA [Suspect]
     Active Substance: ADALIMUMAB
     Indication: Product used for unknown indication
     Route: 058

REACTIONS (16)
  - Pulmonary thrombosis [Unknown]
  - Spinal column injury [Unknown]
  - Post procedural complication [Unknown]
  - Psoriatic arthropathy [Unknown]
  - Colectomy [Unknown]
  - Adverse drug reaction [Unknown]
  - Ureteric injury [Unknown]
  - Concussion [Unknown]
  - Multiple fractures [Unknown]
  - Obstructive pancreatitis [Unknown]
  - Urinary incontinence [Unknown]
  - Small intestinal obstruction [Unknown]
  - Cholecystectomy [Unknown]
  - Skin disorder [Unknown]
  - Colostomy [Unknown]
  - Blood disorder [Unknown]
